FAERS Safety Report 5937767-7 (Version None)
Quarter: 2008Q4

REPORT INFORMATION
  Report Type: 
  Country: None (occurrence: None)
  Receive Date: 20081029
  Receipt Date: 20081021
  Transmission Date: 20090506
  Serious: Yes (Other)
  Sender: FDA-Public Use
  Company Number: 2008SP020582

PATIENT
  Age: 3 Year
  Sex: Female

DRUGS (2)
  1. DESLORATADINE [Suspect]
     Indication: EAR INFECTION
     Dosage: 2.5 ML;QD;PO
     Route: 048
     Dates: end: 20081001
  2. ZYRTEC [Suspect]
     Indication: EAR INFECTION
     Dates: start: 20080101, end: 20081001

REACTIONS (4)
  - DELIRIUM [None]
  - ERYTHEMA [None]
  - NIGHTMARE [None]
  - POOR QUALITY SLEEP [None]
